FAERS Safety Report 14966921 (Version 2)
Quarter: 2019Q1

REPORT INFORMATION
  Report Type: Spontaneous
  Country: PL (occurrence: PL)
  Receive Date: 20180604
  Receipt Date: 20190329
  Transmission Date: 20190417
  Serious: Yes (Death, Hospitalization)
  Sender: FDA-Public Use
  Company Number: PL-ROCHE-2132389

PATIENT
  Age: 13 Month
  Sex: Female

DRUGS (2)
  1. RITUXIMAB. [Suspect]
     Active Substance: RITUXIMAB
     Indication: AUTOIMMUNE HAEMOLYTIC ANAEMIA
  2. RITUXIMAB. [Suspect]
     Active Substance: RITUXIMAB
     Indication: HEPATITIS NEONATAL
     Dosage: 4 DOSES
     Route: 042

REACTIONS (5)
  - Off label use [Fatal]
  - Interstitial lung disease [Fatal]
  - Pneumonia [Unknown]
  - Respiratory failure [Fatal]
  - Intentional product use issue [Fatal]
